FAERS Safety Report 24980970 (Version 1)
Quarter: 2025Q1

REPORT INFORMATION
  Report Type: Spontaneous
  Country: US (occurrence: US)
  Receive Date: 20250218
  Receipt Date: 20250218
  Transmission Date: 20250408
  Serious: No
  Sender: PERRIGO
  Company Number: US-PERRIGO-25US001351

PATIENT
  Age: 81 Year
  Sex: Female
  Weight: 70.295 kg

DRUGS (7)
  1. NICOTINE POLACRILEX [Suspect]
     Active Substance: NICOTINE
     Indication: Smoking cessation therapy
     Route: 002
     Dates: start: 20250114
  2. XARELTO [Concomitant]
     Active Substance: RIVAROXABAN
     Indication: Thrombosis
     Route: 065
     Dates: start: 2010
  3. AMANTADINE [Concomitant]
     Active Substance: AMANTADINE
     Indication: Routine health maintenance
     Route: 065
     Dates: start: 2024
  4. DULOXETINE [Concomitant]
     Active Substance: DULOXETINE
     Indication: Arthritis
     Route: 065
     Dates: start: 2017
  5. FOLIC ACID [Concomitant]
     Active Substance: FOLIC ACID
     Indication: Autoimmune haemolytic anaemia
     Route: 065
     Dates: start: 1993
  6. VITAMIN D NOS [Concomitant]
     Active Substance: CHOLECALCIFEROL\ERGOCALCIFEROL
     Indication: Vitamin D decreased
     Route: 065
     Dates: start: 202401, end: 20250115
  7. ARICEPT [Concomitant]
     Active Substance: DONEPEZIL HYDROCHLORIDE
     Indication: Routine health maintenance
     Route: 065
     Dates: start: 2014

REACTIONS (1)
  - Flatulence [Not Recovered/Not Resolved]

NARRATIVE: CASE EVENT DATE: 20250116
